FAERS Safety Report 4337188-7 (Version None)
Quarter: 2004Q2

REPORT INFORMATION
  Report Type: 
  Country: None (occurrence: None)
  Receive Date: 20040407
  Receipt Date: 20040323
  Transmission Date: 20050107
  Serious: Yes (Hospitalization, Other)
  Sender: FDA-Public Use
  Company Number: US-SHR-04-020866

PATIENT
  Age: 59 Year
  Sex: Female

DRUGS (9)
  1. BETASERON [Suspect]
     Indication: MULTIPLE SCLEROSIS
     Dosage: 8 MIU, EVERY 2D, SUBCUTANEOUS
     Route: 058
     Dates: start: 20001001
  2. PROTONIC   PHARMACIA (PANTOPRAZOLE) [Concomitant]
  3. VALIUM /NET (DIAZEPAM) [Concomitant]
  4. DETROL [Concomitant]
  5. ATENOLOL [Concomitant]
  6. LIPITOR [Concomitant]
  7. PLAVIX [Concomitant]
  8. ENTERIC ASPIRIN /USA/ (ACETYLSALICYLIC  ACID) [Concomitant]
  9. ISORDIL TEMBIDS [Concomitant]

REACTIONS (11)
  - ANGINA UNSTABLE [None]
  - ASTHENIA [None]
  - BALANCE DISORDER [None]
  - CORONARY ARTERY STENOSIS [None]
  - FATIGUE [None]
  - HAEMATOCRIT DECREASED [None]
  - MITRAL VALVE INCOMPETENCE [None]
  - PALPITATIONS [None]
  - PERICARDIAL EFFUSION [None]
  - POSTOPERATIVE FEVER [None]
  - RETROPERITONEAL HAEMORRHAGE [None]
